FAERS Safety Report 14456633 (Version 2)
Quarter: 2018Q1

REPORT INFORMATION
  Report Type: Report from Study
  Country: CH (occurrence: CH)
  Receive Date: 20180130
  Receipt Date: 20180131
  Transmission Date: 20180509
  Serious: Yes (Other)
  Sender: FDA-Public Use
  Company Number: CH-ROCHE-2059944

PATIENT
  Age: 46 Year

DRUGS (6)
  1. TRASTUZUMAB. [Suspect]
     Active Substance: TRASTUZUMAB
     Indication: HER-2 POSITIVE BREAST CANCER
     Dosage: LOADING DOSE (AS PER PROTOCOL)
     Route: 042
     Dates: start: 20150217
  2. TRASTUZUMAB. [Suspect]
     Active Substance: TRASTUZUMAB
     Dosage: 6 MG/KG?MAINTENANCE DOSE (AS PER PROTOCOL)?MOST RECENT DOSE PRIOR TO SERIOUS ADVERSE EVENT: 28/APR/2
     Route: 042
  3. VINORELBINE [Suspect]
     Active Substance: VINORELBINE\VINORELBINE TARTRATE
     Indication: HER-2 POSITIVE BREAST CANCER
     Dosage: MOST RECENT DOSE PRIOR TO SERIOUS ADVERSE EVENT: 04/AUG/2015
     Route: 042
     Dates: start: 20150217
  4. PERTUZUMAB. [Suspect]
     Active Substance: PERTUZUMAB
     Indication: HER-2 POSITIVE BREAST CANCER
     Dosage: LOADING DOSE (AS PER PROTOCOL)
     Route: 042
     Dates: start: 20150217
  5. TRASTUZUMAB EMTANSINE [Suspect]
     Active Substance: ADO-TRASTUZUMAB EMTANSINE
     Indication: HER-2 POSITIVE BREAST CANCER
     Dosage: MOST RECENT DOSE PRIOR TO SERIOUS ADVERSE EVENT: 29/JUN/2016
     Route: 042
     Dates: start: 20160603
  6. PERTUZUMAB. [Suspect]
     Active Substance: PERTUZUMAB
     Dosage: MAINTENANCE DOSE (AS PER PROTOCOL)?MOST RECENT DOSE PRIOR TO SERIOUS ADVERSE EVENT: 28/APR/2016
     Route: 042

REACTIONS (1)
  - Basal cell carcinoma [Recovered/Resolved]

NARRATIVE: CASE EVENT DATE: 20160629
